FAERS Safety Report 5501730-0 (Version None)
Quarter: 2007Q4

REPORT INFORMATION
  Report Type: 
  Country: None (occurrence: None)
  Receive Date: 20071026
  Receipt Date: 20071026
  Transmission Date: 20080405
  Serious: Yes (Life-Threatening, Other)
  Sender: FDA-Public Use
  Company Number: None

PATIENT

DRUGS (2)
  1. LUGOL'S, IODORAL IODINE [Suspect]
     Indication: DETOXIFICATION
     Dosage: 10-20 DROPS OF PER DAY PO
     Route: 048
  2. IP-6 [Suspect]
     Indication: DETOXIFICATION

REACTIONS (1)
  - THERAPEUTIC AGENT TOXICITY [None]
